FAERS Safety Report 4642077-4 (Version None)
Quarter: 2005Q2

REPORT INFORMATION
  Report Type: 
  Country: None (occurrence: None)
  Receive Date: 20050421
  Receipt Date: 20050421
  Transmission Date: 20051028
  Serious: Yes (Hospitalization)
  Sender: FDA-Public Use
  Company Number: None

PATIENT
  Sex: Male
  Weight: 93.7 kg

DRUGS (6)
  1. IRESSA [Suspect]
     Indication: LARYNGEAL CANCER
     Dosage: 250 MG DAILY PO
     Route: 048
     Dates: start: 20050228, end: 20050330
  2. ROXICODONE [Suspect]
     Indication: LARYNGEAL CANCER
     Dosage: 10 MG Q6H PO
     Route: 048
  3. DURAGESIC PATCH [Suspect]
     Indication: LARYNGEAL CANCER
     Dosage: 25 MCG Q3DAYS DERM
     Route: 062
  4. ATIVAN [Suspect]
     Indication: NAUSEA
     Dosage: 0.5 MG Q6H PO
     Route: 048
  5. NEXIUM [Suspect]
     Indication: GASTROOESOPHAGEAL REFLUX DISEASE
     Dosage: 40 MG DAILY PO
     Route: 048
  6. AMBIEN [Suspect]
     Dosage: 5 MG DAILY PO
     Route: 048

REACTIONS (9)
  - CEREBELLAR INFARCTION [None]
  - COORDINATION ABNORMAL [None]
  - DIARRHOEA [None]
  - EMBOLIC STROKE [None]
  - FEBRILE NEUTROPENIA [None]
  - HYPOAESTHESIA [None]
  - NAUSEA [None]
  - VERTEBRAL ARTERY OCCLUSION [None]
  - VOMITING [None]
